FAERS Safety Report 16124252 (Version 1)
Quarter: 2019Q1

REPORT INFORMATION
  Report Type: Spontaneous
  Country: GB (occurrence: GB)
  Receive Date: 20190327
  Receipt Date: 20190327
  Transmission Date: 20190418
  Serious: Yes (Hospitalization, Other)
  Sender: FDA-Public Use
  Company Number: GB-PFIZER INC-2019127825

PATIENT
  Sex: Female
  Weight: 123.6 kg

DRUGS (14)
  1. MUCAINE [ALUMINIUM HYDROXIDE GEL;MAGNESIUM HYDROXIDE;OXETACAINE] [Concomitant]
     Dosage: 5 UNK, UNK
     Route: 048
     Dates: start: 20190207
  2. LANSOPRAZOLE. [Concomitant]
     Active Substance: LANSOPRAZOLE
     Dosage: 30 UNK, UNK
     Route: 048
     Dates: start: 20190207
  3. LEVOMEPROMAZINE [Concomitant]
     Active Substance: LEVOMEPROMAZINE
     Dosage: 6 UNK, UNK
     Route: 048
     Dates: start: 20190207
  4. THYROXINE [Concomitant]
     Active Substance: LEVOTHYROXINE
     Dosage: 150 ?G, UNK
     Route: 048
     Dates: start: 20090701
  5. CISPLATIN. [Suspect]
     Active Substance: CISPLATIN
     Indication: SMALL CELL LUNG CANCER
     Dosage: 164 MG, UNK
     Route: 065
     Dates: start: 20190104, end: 20190128
  6. ETOPOSIDE. [Suspect]
     Active Substance: ETOPOSIDE
     Dosage: UNK
     Route: 065
     Dates: start: 20190228
  7. FLUCONAZOLE. [Concomitant]
     Active Substance: FLUCONAZOLE
     Dosage: 50 UNK, UNK
     Route: 048
     Dates: start: 20190202
  8. ACYCLOVIR [ACICLOVIR] [Concomitant]
     Active Substance: ACYCLOVIR
     Dosage: 400 UNK, UNK
     Route: 048
     Dates: start: 20190207
  9. CISPLATIN. [Suspect]
     Active Substance: CISPLATIN
     Dosage: UNK
     Route: 065
     Dates: start: 20190218
  10. CODEINE [Concomitant]
     Active Substance: CODEINE
     Dosage: 30 UNK, UNK
     Route: 048
     Dates: start: 20190207
  11. BISOPROLOL [Concomitant]
     Active Substance: BISOPROLOL
     Dosage: 1.25 MG, UNK
     Route: 048
     Dates: start: 20181201
  12. ETOPOSIDE. [Suspect]
     Active Substance: ETOPOSIDE
     Indication: SMALL CELL LUNG CANCER
     Dosage: 240 MG, UNK
     Route: 065
     Dates: start: 20190104, end: 20190128
  13. FLUOXETINE [Concomitant]
     Active Substance: FLUOXETINE HYDROCHLORIDE
     Dosage: 20 MG, UNK
     Route: 048
     Dates: start: 20150701
  14. CARBOPLATIN. [Suspect]
     Active Substance: CARBOPLATIN
     Indication: SMALL CELL LUNG CANCER
     Dosage: UNK
     Route: 065
     Dates: start: 20190218

REACTIONS (2)
  - Oesophagitis [Unknown]
  - Gastritis [Recovered/Resolved]

NARRATIVE: CASE EVENT DATE: 20190201
